FAERS Safety Report 7366773-3 (Version None)
Quarter: 2011Q1

REPORT INFORMATION
  Report Type: 
  Country: None (occurrence: None)
  Receive Date: 20110322
  Receipt Date: 20110318
  Transmission Date: 20110831
  Serious: Yes (Other)
  Sender: FDA-Public Use
  Company Number: US-PFIZER INC-2011060466

PATIENT
  Sex: Male

DRUGS (2)
  1. SUTENT [Suspect]
     Indication: RENAL CANCER
     Dosage: 25 MG, 2X/DAY
     Route: 048
     Dates: start: 20081009
  2. PREVACID [Concomitant]
     Dosage: 15 MG, UNK
     Route: 048

REACTIONS (4)
  - CHOLECYSTECTOMY [None]
  - FATIGUE [None]
  - CONSTIPATION [None]
  - DIARRHOEA [None]
